FAERS Safety Report 8175494-9 (Version None)
Quarter: 2012Q1

REPORT INFORMATION
  Report Type: 
  Country: None (occurrence: None)
  Receive Date: 20120229
  Receipt Date: 20120222
  Transmission Date: 20120608
  Serious: Yes (Hospitalization)
  Sender: FDA-Public Use
  Company Number: US-ASTRAZENECA-2012SE12308

PATIENT
  Sex: Male

DRUGS (2)
  1. SEROQUEL XR [Suspect]
     Indication: BIPOLAR DISORDER
     Dosage: 100-150 MG
     Route: 048
  2. SEROQUEL XR [Suspect]
     Indication: DEPRESSION
     Dosage: 100-150 MG
     Route: 048

REACTIONS (1)
  - CRYING [None]
